FAERS Safety Report 7455073-9 (Version None)
Quarter: 2011Q2

REPORT INFORMATION
  Report Type: 
  Country: None (occurrence: None)
  Receive Date: 20110503
  Receipt Date: 20110429
  Transmission Date: 20111010
  Serious: Yes (Death)
  Sender: FDA-Public Use
  Company Number: US-PFIZER INC-2011093219

PATIENT
  Age: 54 Year
  Sex: Male

DRUGS (4)
  1. TRAMADOL [Suspect]
     Dosage: UNK
  2. CAFFEINE [Suspect]
     Dosage: UNK
  3. ALPRAZOLAM [Suspect]
     Dosage: UNK
  4. OXYCODONE [Suspect]
     Dosage: UNK

REACTIONS (2)
  - GUN SHOT WOUND [None]
  - HOMICIDE [None]
